FAERS Safety Report 4382502-X (Version None)
Quarter: 2004Q2

REPORT INFORMATION
  Report Type: 
  Country: None (occurrence: None)
  Receive Date: 20040607
  Receipt Date: 20040525
  Transmission Date: 20050107
  Serious: Yes (Death)
  Sender: FDA-Public Use
  Company Number: 2004-02011

PATIENT
  Sex: Female

DRUGS (1)
  1. IMMUCYST (BCG-IT (CONNAUGHT) ), AVENTIS PASTEUR LTD., [Suspect]
     Indication: BLADDER CANCER

REACTIONS (1)
  - MENINGITIS TUBERCULOUS [None]
